FAERS Safety Report 6759967-9 (Version None)
Quarter: 2010Q2

REPORT INFORMATION
  Report Type: 
  Country: None (occurrence: None)
  Receive Date: 20100604
  Receipt Date: 20100525
  Transmission Date: 20101027
  Serious: Yes (Hospitalization)
  Sender: FDA-Public Use
  Company Number: 2009AC000020

PATIENT
  Age: 81 Year
  Sex: Male

DRUGS (63)
  1. DIGOXIN [Suspect]
     Indication: CARDIAC DISORDER
     Dosage: 0.125 MG, QD, PO
     Route: 048
  2. DIGOXIN [Suspect]
     Indication: ATRIAL FIBRILLATION
     Dosage: 0.125 MG; QD; PO
     Route: 048
     Dates: start: 19890308
  3. AMIODARONE [Concomitant]
  4. CORDARONE [Concomitant]
  5. BIAXIN [Concomitant]
  6. COUMADIN [Concomitant]
  7. DIAZEPAM [Concomitant]
  8. HUMIBID [Concomitant]
  9. ASPIRIN [Concomitant]
  10. SOTALOL [Concomitant]
  11. COZAAR [Concomitant]
  12. SPIRONOLACTONE [Concomitant]
  13. ISOPTIN /00014301/ [Concomitant]
  14. HYDROXYZINE [Concomitant]
  15. CLONAZEPAM [Concomitant]
  16. WARFARIN [Concomitant]
  17. VERAPAMIL [Concomitant]
  18. LOVASTATIN [Concomitant]
  19. DYPHYLLINE GG [Concomitant]
  20. ALPHAGAN /01341101/ [Concomitant]
  21. OXYCODONE W/PARACETAMOL [Concomitant]
  22. FLOMAX [Concomitant]
  23. TRAMADOL [Concomitant]
  24. CITALOPRAM [Concomitant]
  25. BUSIPRONE [Concomitant]
  26. PROAIR HFA [Concomitant]
  27. SIMVASTATIN [Concomitant]
  28. TEMAZEPAM [Concomitant]
  29. SYNTHROID [Concomitant]
  30. PRAVACHOL [Concomitant]
  31. PROPO-N/APAP [Concomitant]
  32. AMBIEN [Concomitant]
  33. FUROSEMIDE [Concomitant]
  34. K-DUR [Concomitant]
  35. APAP W/ CODEINE [Concomitant]
  36. CELEBREX [Concomitant]
  37. NEURONTIN [Concomitant]
  38. BACLOFEN [Concomitant]
  39. ULTRAM [Concomitant]
  40. DEPAKOTE [Concomitant]
  41. ROXICET [Concomitant]
  42. VICOPROFEN [Concomitant]
  43. POTASSIUM CHLORIDE [Concomitant]
  44. ZITHROMAX [Concomitant]
  45. QUINIDINE HCL [Concomitant]
  46. PROCAINAMIDE [Concomitant]
  47. NAPROSYN [Concomitant]
  48. XANAX [Concomitant]
  49. CO-BENEMID [Concomitant]
  50. PROPAFENONE HCL [Concomitant]
  51. CALAN [Concomitant]
  52. RHYTMOL [Concomitant]
  53. ALBUTEROL [Concomitant]
  54. LOMOTIL [Concomitant]
  55. IMODIUM [Concomitant]
  56. MOTRIN [Concomitant]
  57. BRIMONIDINE [Concomitant]
  58. ENOXAPARIN SODIUM [Concomitant]
  59. ATORVASTATIN [Concomitant]
  60. BISACODYL [Concomitant]
  61. PERCOCET [Concomitant]
  62. MORPHINE [Concomitant]
  63. LEVAQUIN [Concomitant]

REACTIONS (62)
  - AGITATION [None]
  - AGORAPHOBIA [None]
  - ANAEMIA [None]
  - ANXIETY [None]
  - APHASIA [None]
  - APPENDICITIS [None]
  - ARRHYTHMIA [None]
  - ASTHENIA [None]
  - ATRIAL FLUTTER [None]
  - ATRIAL TACHYCARDIA [None]
  - ATRIOVENTRICULAR BLOCK COMPLETE [None]
  - BLOOD CHOLESTEROL INCREASED [None]
  - BRADYCARDIA [None]
  - BUNDLE BRANCH BLOCK [None]
  - BUNDLE BRANCH BLOCK RIGHT [None]
  - CARDIOMEGALY [None]
  - CATARACT [None]
  - CHEST PAIN [None]
  - CHILLS [None]
  - CONTUSION [None]
  - COUGH [None]
  - DEVICE MALFUNCTION [None]
  - DIARRHOEA [None]
  - DIZZINESS [None]
  - DYSPNOEA [None]
  - ECONOMIC PROBLEM [None]
  - EJECTION FRACTION DECREASED [None]
  - EPISTAXIS [None]
  - FACIAL PALSY [None]
  - FALL [None]
  - FATIGUE [None]
  - FEMORAL NECK FRACTURE [None]
  - GASTROINTESTINAL HAEMORRHAGE [None]
  - HEADACHE [None]
  - HELICOBACTER INFECTION [None]
  - HIP FRACTURE [None]
  - HYPERHIDROSIS [None]
  - HYPERTENSION [None]
  - INSOMNIA [None]
  - INTERVERTEBRAL DISC PROTRUSION [None]
  - JAUNDICE [None]
  - MULTIPLE INJURIES [None]
  - MUSCULOSKELETAL PAIN [None]
  - MYOCARDIAL INFARCTION [None]
  - NAUSEA [None]
  - NECK PAIN [None]
  - NERVOUSNESS [None]
  - PAIN [None]
  - PAIN IN EXTREMITY [None]
  - PULMONARY HYPERTENSION [None]
  - PYREXIA [None]
  - RENAL FAILURE ACUTE [None]
  - RIB FRACTURE [None]
  - ROAD TRAFFIC ACCIDENT [None]
  - SICK SINUS SYNDROME [None]
  - SUPRAVENTRICULAR EXTRASYSTOLES [None]
  - TRANSIENT ISCHAEMIC ATTACK [None]
  - TREATMENT FAILURE [None]
  - TRICUSPID VALVE STENOSIS [None]
  - VENTRICULAR EXTRASYSTOLES [None]
  - VOMITING [None]
  - WHEEZING [None]
